FAERS Safety Report 7676353-8 (Version None)
Quarter: 2011Q3

REPORT INFORMATION
  Report Type: 
  Country: None (occurrence: None)
  Receive Date: 20110811
  Receipt Date: 20110804
  Transmission Date: 20111222
  Serious: No
  Sender: FDA-Public Use
  Company Number: US-PFIZER INC-2011178742

PATIENT
  Sex: Female
  Weight: 51 kg

DRUGS (3)
  1. LEVAQUIN [Concomitant]
     Indication: CYSTITIS
     Dosage: 500 MG, UNK
  2. PREMARIN [Suspect]
     Indication: CYSTITIS
  3. PREMARIN [Suspect]
     Indication: OFF LABEL USE
     Dosage: UNK
     Dates: start: 20110701

REACTIONS (2)
  - DRUG INEFFECTIVE FOR UNAPPROVED INDICATION [None]
  - CIRCUMSTANCE OR INFORMATION CAPABLE OF LEADING TO MEDICATION ERROR [None]
